FAERS Safety Report 25902452 (Version 2)
Quarter: 2025Q4

REPORT INFORMATION
  Report Type: Spontaneous
  Country: PR (occurrence: PR)
  Receive Date: 20251009
  Receipt Date: 20251010
  Transmission Date: 20260118
  Serious: No
  Sender: FRESENIUS KABI
  Company Number: PR-FreseniusKabi-FK202512704

PATIENT
  Age: 3 Year
  Sex: Female
  Weight: 17.4 kg

DRUGS (4)
  1. FAMOTIDINE [Suspect]
     Active Substance: FAMOTIDINE
     Indication: Product used for unknown indication
     Dosage: INJECTION?CAME TO ER FOR NASAL CONGESTION AND RHINORRHEA, FAMOTIDINE IV PUSH
     Route: 042
  2. SOLU-MEDROL [Suspect]
     Active Substance: METHYLPREDNISOLONE SODIUM SUCCINATE
     Indication: Product used for unknown indication
  3. SODIUM CHLORIDE [Suspect]
     Active Substance: SODIUM CHLORIDE
     Indication: Product used for unknown indication
  4. LORATADINE [Suspect]
     Active Substance: LORATADINE
     Indication: Product used for unknown indication

REACTIONS (3)
  - Respiratory disorder [Unknown]
  - Mental status changes [Unknown]
  - Chills [Recovered/Resolved]

NARRATIVE: CASE EVENT DATE: 20250915
